FAERS Safety Report 7593177-0 (Version None)
Quarter: 2011Q3

REPORT INFORMATION
  Report Type: 
  Country: None (occurrence: None)
  Receive Date: 20110706
  Receipt Date: 20110622
  Transmission Date: 20111222
  Serious: Yes (Death, Other)
  Sender: FDA-Public Use
  Company Number: DE-ALEXION-A201100977

PATIENT
  Sex: Male

DRUGS (9)
  1. MENINGOCOCCAL VACCINE [Concomitant]
     Indication: IMMUNISATION
     Dosage: UNK
     Dates: start: 20110610, end: 20110610
  2. LORAZEPAM [Concomitant]
     Indication: AGITATION
     Dosage: 1 MG, UNK
     Route: 042
     Dates: start: 20110619
  3. METRONIDAZOLE [Concomitant]
     Indication: COLITIS
     Dosage: 500 MG, UNK
     Route: 042
     Dates: start: 20110619
  4. MESALAMINE [Concomitant]
     Indication: COLITIS
     Dosage: 500 MG, UNK
     Route: 048
     Dates: start: 20110619
  5. PANTOPRAZOLE [Concomitant]
     Indication: OESOPHAGITIS
     Dosage: 160 MG, UNK
     Route: 042
     Dates: start: 20110620
  6. MEROPENEM [Concomitant]
     Indication: COLITIS
     Dosage: 500 MG, UNK
     Route: 042
     Dates: start: 20110619
  7. SOLIRIS [Suspect]
     Indication: HAEMOLYTIC URAEMIC SYNDROME
     Dosage: 900 MG, QW
     Route: 042
     Dates: start: 20110609
  8. AZITHROMYCIN [Concomitant]
     Indication: ANTIBIOTIC PROPHYLAXIS
     Dosage: UNK
     Dates: start: 20110610
  9. MIRTAZAPINE [Concomitant]
     Indication: DEPRESSION
     Dosage: 15 MG, UNK
     Route: 048
     Dates: start: 20110619

REACTIONS (2)
  - CARDIOGENIC SHOCK [None]
  - VENTRICULAR FIBRILLATION [None]
